FAERS Safety Report 25341133 (Version 1)
Quarter: 2025Q2

REPORT INFORMATION
  Report Type: Spontaneous
  Country: IT (occurrence: IT)
  Receive Date: 20250521
  Receipt Date: 20250521
  Transmission Date: 20250717
  Serious: Yes (Other)
  Sender: RANBAXY
  Company Number: IT-SUN PHARMACEUTICAL INDUSTRIES LTD-2025R1-507562

PATIENT
  Age: 50 Year
  Sex: Male

DRUGS (8)
  1. CISPLATIN [Suspect]
     Active Substance: CISPLATIN
     Indication: Chemotherapy
     Route: 065
  2. TRABECTEDIN [Suspect]
     Active Substance: TRABECTEDIN
     Indication: Chemotherapy
     Route: 065
  3. PAZOPANIB [Suspect]
     Active Substance: PAZOPANIB
     Indication: Chemotherapy
     Route: 065
  4. CARBOPLATIN [Suspect]
     Active Substance: CARBOPLATIN
     Indication: Chemotherapy
     Route: 065
  5. GEMCITABINE [Suspect]
     Active Substance: GEMCITABINE
     Indication: Chemotherapy
     Route: 065
  6. EPIRUBICIN [Suspect]
     Active Substance: EPIRUBICIN
     Indication: Chemotherapy
     Route: 065
  7. ETOPOSIDE [Suspect]
     Active Substance: ETOPOSIDE
     Indication: Chemotherapy
     Route: 065
  8. IFOSFAMIDE [Suspect]
     Active Substance: IFOSFAMIDE
     Indication: Chemotherapy
     Route: 065

REACTIONS (1)
  - Disease recurrence [Unknown]
